FAERS Safety Report 23684950 (Version 1)
Quarter: 2024Q1

REPORT INFORMATION
  Report Type: Report from Study
  Country: MX (occurrence: MX)
  Receive Date: 20240328
  Receipt Date: 20240328
  Transmission Date: 20240410
  Serious: Yes (Other)
  Sender: FDA-Public Use
  Company Number: MX-002147023-NVSC2024MX059904

PATIENT
  Sex: Female
  Weight: 57.2 kg

DRUGS (3)
  1. KISQALI [Suspect]
     Active Substance: RIBOCICLIB
     Indication: Breast cancer metastatic
     Dosage: 600 MG, QD (3 X 200MG),STARTED THE SECOND MONTH OF THE TREATMENT ON WEDNESDAY
     Route: 048
     Dates: start: 20240206
  2. KISQALI [Suspect]
     Active Substance: RIBOCICLIB
     Dosage: UNK
     Route: 048
     Dates: start: 20240213
  3. LETROZOLE [Suspect]
     Active Substance: LETROZOLE
     Indication: Breast cancer metastatic
     Dosage: STARTED THE SECOND MONTH OF THE TREATMENT ON WEDNESDAY
     Route: 065

REACTIONS (18)
  - Liver injury [Unknown]
  - Immune system disorder [Not Recovered/Not Resolved]
  - Cartilage injury [Unknown]
  - Fatigue [Unknown]
  - Premature menopause [Unknown]
  - Abdominal pain upper [Unknown]
  - Nausea [Unknown]
  - Somnolence [Unknown]
  - Lacrimation increased [Unknown]
  - Synovial cyst [Unknown]
  - Abdominal discomfort [Unknown]
  - Eye irritation [Unknown]
  - Diarrhoea [Unknown]
  - Constipation [Unknown]
  - Stress [Unknown]
  - Anxiety [Unknown]
  - Blood glucose increased [Unknown]
  - Pain [Unknown]
